FAERS Safety Report 4838198-3 (Version None)
Quarter: 2005Q4

REPORT INFORMATION
  Report Type: 
  Country: None (occurrence: None)
  Receive Date: 20051123
  Receipt Date: 20051108
  Transmission Date: 20060501
  Serious: No
  Sender: FDA-Public Use
  Company Number: A20050799

PATIENT
  Age: 81 Year
  Sex: Female

DRUGS (2)
  1. CRAVIT OPHTHALMIC  SOLUTION (0.5% LEVOFLOXACIN OPHTHALMIC SOLUTION) [Suspect]
     Route: 031
     Dates: start: 20010101, end: 20030201
  2. FLUMETHOLON 0.1 OPHTHALMIC SOLUTION (0.1% FLUOROMETHOLONE OPHTHALMIC S [Suspect]
     Dosage: INTRAOCULAR INSTILLATION
     Route: 031
     Dates: start: 20010101, end: 20030201

REACTIONS (1)
  - KERATITIS FUNGAL [None]
